FAERS Safety Report 6783968-8 (Version None)
Quarter: 2010Q2

REPORT INFORMATION
  Report Type: 
  Country: None (occurrence: None)
  Receive Date: 20100622
  Receipt Date: 20091015
  Transmission Date: 20101027
  Serious: No
  Sender: FDA-Public Use
  Company Number: US-BRISTOL-MYERS SQUIBB COMPANY-14828172

PATIENT
  Sex: Female

DRUGS (2)
  1. SINEMET [Suspect]
     Indication: RESTLESS LEGS SYNDROME
     Route: 048
  2. QUINAMM [Concomitant]

REACTIONS (1)
  - DRUG INEFFECTIVE [None]
